FAERS Safety Report 20972353 (Version 1)
Quarter: 2022Q2

REPORT INFORMATION
  Report Type: Other
  Country: CN (occurrence: None)
  Receive Date: 20220617
  Receipt Date: 20220617
  Transmission Date: 20220720
  Serious: Yes (Hospitalization)
  Sender: FDA-Public Use
  Company Number: CN-Saptalis Pharmaceuticals,LLC-000243

PATIENT
  Age: 29 Year
  Sex: Female

DRUGS (2)
  1. POTASSIUM CHLORIDE [Suspect]
     Active Substance: POTASSIUM CHLORIDE
     Indication: Abortion induced
     Dates: start: 20211228
  2. METHOTREXATE [Suspect]
     Active Substance: METHOTREXATE
     Indication: Abortion induced
     Dosage: DAILY 20MG INTRAMUSCULAR MTX FOR 5 CONSECUTIVE DAYS.
     Route: 030
     Dates: start: 20211228

REACTIONS (3)
  - Abdominal pain [Recovered/Resolved]
  - Therapeutic product effect incomplete [Recovered/Resolved]
  - Human chorionic gonadotropin increased [Recovered/Resolved]

NARRATIVE: CASE EVENT DATE: 20211230
